FAERS Safety Report 25803669 (Version 1)
Quarter: 2025Q3

REPORT INFORMATION
  Report Type: Spontaneous
  Country: GB (occurrence: GB)
  Receive Date: 20250915
  Receipt Date: 20250915
  Transmission Date: 20251020
  Serious: Yes (Other)
  Sender: ASCEND THERAPEUTICS US, LLC
  Company Number: GB-Ascend Therapeutics US, LLC-2184532

PATIENT
  Age: 54 Year
  Sex: Female

DRUGS (6)
  1. ESTROGEL [Suspect]
     Active Substance: ESTRADIOL
     Indication: Ill-defined disorder
     Dates: start: 20250718, end: 20250829
  2. ESTRADIOL [Suspect]
     Active Substance: ESTRADIOL
     Dates: start: 20250718, end: 20250829
  3. ESTRADIOL [Concomitant]
     Active Substance: ESTRADIOL
     Dates: start: 20250829
  4. UTROGESTAN [Concomitant]
     Active Substance: PROGESTERONE
     Dates: start: 20250818
  5. DIAZEPAM [Concomitant]
     Active Substance: DIAZEPAM
     Dates: start: 20250729, end: 20250812
  6. PROGESTERONE [Concomitant]
     Active Substance: PROGESTERONE
     Dates: start: 20250624

REACTIONS (3)
  - Nipple swelling [Recovering/Resolving]
  - Drug ineffective [Unknown]
  - Hyperaesthesia [Recovering/Resolving]
